FAERS Safety Report 8549287 (Version 2)
Quarter: 2015Q1

REPORT INFORMATION
  Report Type: Spontaneous
  Country: US (occurrence: US)
  Receive Date: 20120507
  Receipt Date: 20150310
  Transmission Date: 20150721
  Serious: Yes (Other)
  Sender: FDA-Public Use
  Company Number: US-ROCHE-1064312

PATIENT
  Age: 67 Year
  Sex: Female

DRUGS (3)
  1. FOSAMAX [Suspect]
     Active Substance: ALENDRONATE SODIUM
     Indication: OSTEOPOROSIS
     Route: 048
     Dates: start: 1997, end: 200707
  2. BONIVA [Suspect]
     Active Substance: IBANDRONATE SODIUM
     Indication: OSTEOPOROSIS
     Route: 048
     Dates: start: 200707, end: 201012
  3. FOSAMAX [Suspect]
     Active Substance: ALENDRONATE SODIUM
     Route: 048
     Dates: start: 199806

REACTIONS (6)
  - Low turnover osteopathy [Unknown]
  - Osteogenesis imperfecta [Unknown]
  - Femur fracture [Unknown]
  - Femur fracture [Unknown]
  - Depression [Unknown]
  - Foot fracture [Unknown]

NARRATIVE: CASE EVENT DATE: 20101227
